FAERS Safety Report 9424498 (Version 1)
Quarter: 2013Q3

REPORT INFORMATION
  Report Type: Spontaneous
  Country: US (occurrence: US)
  Receive Date: 20130729
  Receipt Date: 20130729
  Transmission Date: 20140515
  Serious: No
  Sender: FDA-Public Use
  Company Number: US-009507513-1307USA006274

PATIENT
  Age: 14 Year
  Sex: Female

DRUGS (1)
  1. NASONEX [Suspect]
     Dosage: UNKNOWN
     Route: 045

REACTIONS (1)
  - Epistaxis [Recovered/Resolved]
